FAERS Safety Report 22613231 (Version 1)
Quarter: 2023Q2

REPORT INFORMATION
  Report Type: Report from Study
  Country: CA (occurrence: CA)
  Receive Date: 20230618
  Receipt Date: 20230618
  Transmission Date: 20230721
  Serious: Yes (Other)
  Sender: FDA-Public Use
  Company Number: CA-ABBVIE-4738149

PATIENT
  Sex: Female

DRUGS (3)
  1. RINVOQ [Suspect]
     Active Substance: UPADACITINIB
     Indication: Colitis ulcerative
     Route: 048
     Dates: start: 20230119, end: 20230201
  2. RINVOQ [Suspect]
     Active Substance: UPADACITINIB
     Indication: Colitis ulcerative
     Dosage: DECREASED TO 2 RINVOQ
     Route: 048
     Dates: start: 20230319
  3. RINVOQ [Suspect]
     Active Substance: UPADACITINIB
     Indication: Colitis ulcerative
     Route: 048
     Dates: start: 20230303, end: 20230318

REACTIONS (17)
  - Cyst [Unknown]
  - Tooth impacted [Unknown]
  - Influenza [Unknown]
  - Ear infection [Unknown]
  - Asthma [Not Recovered/Not Resolved]
  - Fungal infection [Recovered/Resolved]
  - Laryngitis [Recovered/Resolved]
  - SARS-CoV-2 test positive [Recovered/Resolved]
  - Conjunctivitis [Unknown]
  - Productive cough [Recovered/Resolved]
  - Nasopharyngitis [Recovered/Resolved]
  - Respiratory tract congestion [Recovered/Resolved]
  - Fungal infection [Recovered/Resolved]
  - Conjunctivitis [Unknown]
  - Oropharyngeal pain [Recovered/Resolved]
  - Nasopharyngitis [Recovered/Resolved]
  - Oropharyngeal pain [Recovered/Resolved]

NARRATIVE: CASE EVENT DATE: 20230101
